FAERS Safety Report 5973074-4 (Version None)
Quarter: 2008Q4

REPORT INFORMATION
  Report Type: 
  Country: None (occurrence: None)
  Receive Date: 20081201
  Receipt Date: 20081121
  Transmission Date: 20090506
  Serious: Yes (Life-Threatening, Hospitalization)
  Sender: FDA-Public Use
  Company Number: CH-TEVA-181288ISR

PATIENT
  Age: 65 Year
  Sex: Female
  Weight: 61 kg

DRUGS (10)
  1. CITALOPRAM HYDROBROMIDE [Suspect]
     Indication: DEPRESSION
     Route: 048
     Dates: end: 20080820
  2. AMITRIPTYLINE HCL [Suspect]
     Indication: DEPRESSION
     Route: 048
     Dates: end: 20080820
  3. DESMOPRESSIN ACETATE [Concomitant]
     Route: 045
     Dates: end: 20080902
  4. URSODIOL [Concomitant]
     Indication: BILIARY CIRRHOSIS PRIMARY
     Route: 048
  5. PANTOPRAZOLE SODIUM [Concomitant]
     Route: 048
  6. PANCREATIN [Concomitant]
     Route: 048
  7. POTASSIUM CHLORIDE [Concomitant]
     Route: 048
  8. LEKOVIT CA [Concomitant]
     Route: 048
  9. ATENOLOL [Concomitant]
     Route: 048
  10. INTERFERON BETA [Concomitant]
     Indication: MULTIPLE SCLEROSIS
     Route: 058

REACTIONS (1)
  - ELECTROCARDIOGRAM QT INTERVAL ABNORMAL [None]
